FAERS Safety Report 25965807 (Version 1)
Quarter: 2025Q4

REPORT INFORMATION
  Report Type: Report from Study
  Country: AE (occurrence: AE)
  Receive Date: 20251027
  Receipt Date: 20251027
  Transmission Date: 20260118
  Serious: Yes (Other)
  Sender: JOHNSON AND JOHNSON
  Company Number: AE-JNJFOC-20251024586

PATIENT
  Age: 5 Decade
  Sex: Male

DRUGS (5)
  1. SIMPONI [Suspect]
     Active Substance: GOLIMUMAB
     Indication: Rheumatoid arthritis
     Route: 058
     Dates: start: 2024
  2. GUPISONE [Concomitant]
     Indication: Product used for unknown indication
     Dosage: 4 TABS DAILY THEN REDUCE 1 TAB?EVERY 10 DAYS
  3. METHOTREXATE [Concomitant]
     Active Substance: METHOTREXATE
     Indication: Product used for unknown indication
  4. FOLICUM [Concomitant]
     Indication: Product used for unknown indication
  5. RECONIL [Concomitant]
     Indication: Product used for unknown indication

REACTIONS (3)
  - Rheumatoid arthritis [Unknown]
  - Bladder cancer [Unknown]
  - Decreased immune responsiveness [Unknown]
